FAERS Safety Report 9742816 (Version 2)
Quarter: 2013Q4

REPORT INFORMATION
  Report Type: Report from Study
  Country: DE (occurrence: DE)
  Receive Date: 20131210
  Receipt Date: 20131210
  Transmission Date: 20140711
  Serious: Yes (Hospitalization)
  Sender: FDA-Public Use
  Company Number: DE-ABBVIE-13P-062-1145129-00

PATIENT
  Age: 62 Year
  Sex: Male

DRUGS (2)
  1. HUMIRA [Suspect]
     Indication: RHEUMATOID ARTHRITIS
     Route: 058
     Dates: start: 20100820, end: 20130731
  2. HUMIRA [Suspect]
     Dates: start: 20131107

REACTIONS (3)
  - Limb injury [Recovered/Resolved]
  - Road traffic accident [Recovered/Resolved]
  - Lower limb fracture [Recovered/Resolved]
